FAERS Safety Report 24451301 (Version 1)
Quarter: 2024Q4

REPORT INFORMATION
  Report Type: Spontaneous
  Country: US (occurrence: US)
  Receive Date: 20241017
  Receipt Date: 20241017
  Transmission Date: 20250115
  Serious: Yes (Other)
  Sender: PROACTIV
  Company Number: US-The Proactiv LLC-2163240

PATIENT
  Age: 15 Year
  Sex: Female

DRUGS (6)
  1. PROACTIV CLEAN MINERAL ACNE CLEANSER [Suspect]
     Active Substance: SULFUR
  2. AZELAIC ACID [Suspect]
     Active Substance: AZELAIC ACID
  3. PROACTIV SKIN PURIFYING MASK [Suspect]
     Active Substance: SULFUR
  4. COSMETICS [Suspect]
     Active Substance: COSMETICS
  5. PROACTIV ACNE BODY WASH [Suspect]
     Active Substance: SALICYLIC ACID
  6. PROACTIV CLEAN ACNE CLEARING HYDRATOR [Suspect]
     Active Substance: SALICYLIC ACID

REACTIONS (2)
  - Cutaneous lupus erythematosus [Unknown]
  - Skin irritation [Unknown]
